FAERS Safety Report 8405294-3 (Version None)
Quarter: 2012Q2

REPORT INFORMATION
  Report Type: 
  Country: None (occurrence: None)
  Receive Date: 20120603
  Receipt Date: 20120529
  Transmission Date: 20120825
  Serious: Yes (Hospitalization)
  Sender: FDA-Public Use
  Company Number: FR-AMGEN-FRASP2012027537

PATIENT
  Age: 62 Year
  Sex: Female
  Weight: 65 kg

DRUGS (4)
  1. FOLFIRI [Concomitant]
     Indication: COLON CANCER
     Dosage: UNK
     Dates: start: 20120426
  2. SOLU-MEDROL [Concomitant]
     Dosage: 40 MG, UNK
     Route: 042
     Dates: start: 20120426, end: 20120426
  3. VECTIBIX [Suspect]
     Indication: COLORECTAL CANCER
     Dosage: 400 MG, UNK
     Route: 042
     Dates: start: 20120426, end: 20120426
  4. VECTIBIX [Suspect]
     Dosage: UNK MG, UNK
     Route: 042
     Dates: start: 20120426, end: 20120426

REACTIONS (4)
  - CHILLS [None]
  - MALAISE [None]
  - AUTOIMMUNE THROMBOCYTOPENIA [None]
  - VOMITING [None]
